FAERS Safety Report 5683265-8 (Version None)
Quarter: 2008Q1

REPORT INFORMATION
  Report Type: 
  Country: None (occurrence: None)
  Receive Date: 20080326
  Receipt Date: 20080313
  Transmission Date: 20080703
  Serious: Yes (Death)
  Sender: FDA-Public Use
  Company Number: 2008S1004312

PATIENT
  Sex: Female

DRUGS (1)
  1. IPRATROPIUM BROMIDE [Suspect]
     Indication: LUNG DISORDER
     Dosage: INHALATION
     Route: 055
     Dates: end: 20070101

REACTIONS (3)
  - BRONCHIECTASIS [None]
  - RESPIRATORY FAILURE [None]
  - UNEVALUABLE EVENT [None]
